FAERS Safety Report 10208649 (Version 1)
Quarter: 2014Q2

REPORT INFORMATION
  Report Type: Spontaneous
  Country: TR (occurrence: TR)
  Receive Date: 20140530
  Receipt Date: 20140530
  Transmission Date: 20141212
  Serious: Yes (Other)
  Sender: FDA-Public Use
  Company Number: PHHY2014TR065528

PATIENT
  Age: 69 Year
  Sex: Male

DRUGS (3)
  1. BACLOFEN INTRATHECAL [Suspect]
     Indication: MUSCLE SPASTICITY
     Dosage: 100 UG PER DAY
     Route: 037
  2. BACLOFEN [Suspect]
     Indication: MUSCLE SPASTICITY
     Route: 048
  3. TIZANIDINE [Suspect]

REACTIONS (4)
  - Affect lability [Unknown]
  - Delirium [Unknown]
  - Confusional state [Unknown]
  - Hallucination [Unknown]
